FAERS Safety Report 18512216 (Version 2)
Quarter: 2020Q4

REPORT INFORMATION
  Report Type: Report from Study
  Country: US (occurrence: US)
  Receive Date: 20201117
  Receipt Date: 20201124
  Transmission Date: 20210114
  Serious: Yes (Death, Other)
  Sender: FDA-Public Use
  Company Number: US-SHIRE-US202029035

PATIENT
  Sex: Male
  Weight: 91.17 kg

DRUGS (12)
  1. GATTEX [Suspect]
     Active Substance: TEDUGLUTIDE\WATER
     Indication: SHORT-BOWEL SYNDROME
     Dosage: 0.450 UNIT UNKNOWN, OTHER
     Route: 058
     Dates: start: 20200128
  2. GATTEX [Suspect]
     Active Substance: TEDUGLUTIDE\WATER
     Dosage: 4.5 MILLIGRAM, QD
     Route: 058
     Dates: start: 201910, end: 202008
  3. GATTEX [Suspect]
     Active Substance: TEDUGLUTIDE\WATER
     Indication: SHORT-BOWEL SYNDROME
     Dosage: 0.450 UNIT UNKNOWN, OTHER
     Route: 058
     Dates: start: 20200128
  4. GATTEX [Suspect]
     Active Substance: TEDUGLUTIDE\WATER
     Indication: SHORT-BOWEL SYNDROME
     Dosage: 0.450 UNIT UNKNOWN, OTHER
     Route: 058
     Dates: start: 20200128
  5. GATTEX [Suspect]
     Active Substance: TEDUGLUTIDE\WATER
     Dosage: 4.5 MILLIGRAM, QD
     Route: 058
     Dates: start: 201910, end: 202008
  6. GATTEX [Suspect]
     Active Substance: TEDUGLUTIDE\WATER
     Dosage: 0.225 MILLILITER, 1X/DAY:QD
     Route: 050
  7. GATTEX [Suspect]
     Active Substance: TEDUGLUTIDE\WATER
     Indication: SHORT-BOWEL SYNDROME
     Dosage: 0.450 UNIT UNKNOWN, OTHER
     Route: 058
     Dates: start: 20200128
  8. GATTEX [Suspect]
     Active Substance: TEDUGLUTIDE\WATER
     Dosage: 0.225 MILLILITER, 1X/DAY:QD
     Route: 050
  9. GATTEX [Suspect]
     Active Substance: TEDUGLUTIDE\WATER
     Dosage: 0.225 MILLILITER, 1X/DAY:QD
     Route: 050
  10. GATTEX [Suspect]
     Active Substance: TEDUGLUTIDE\WATER
     Dosage: 4.5 MILLIGRAM, QD
     Route: 058
     Dates: start: 201910, end: 202008
  11. GATTEX [Suspect]
     Active Substance: TEDUGLUTIDE\WATER
     Dosage: 4.5 MILLIGRAM, QD
     Route: 058
     Dates: start: 201910, end: 202008
  12. GATTEX [Suspect]
     Active Substance: TEDUGLUTIDE\WATER
     Dosage: 0.225 MILLILITER, 1X/DAY:QD
     Route: 050

REACTIONS (4)
  - Respiratory failure [Fatal]
  - Chronic kidney disease [Fatal]
  - Therapy cessation [Unknown]
  - Pulmonary hypertension [Fatal]
